FAERS Safety Report 21118795 (Version 2)
Quarter: 2022Q3

REPORT INFORMATION
  Report Type: Report from Study
  Country: IT (occurrence: IT)
  Receive Date: 20220722
  Receipt Date: 20220810
  Transmission Date: 20221027
  Serious: Yes (Death, Hospitalization, Other)
  Sender: FDA-Public Use
  Company Number: IT-SA-SAC20220624001262

PATIENT
  Age: 65 Year
  Sex: Male

DRUGS (1)
  1. AGALSIDASE BETA [Suspect]
     Active Substance: AGALSIDASE BETA
     Indication: Fabry^s disease
     Dosage: 1 DF, QOW
     Route: 041
     Dates: start: 20200424, end: 20220614

REACTIONS (2)
  - Arrhythmia [Fatal]
  - Condition aggravated [Fatal]

NARRATIVE: CASE EVENT DATE: 20220620
